FAERS Safety Report 7186270-8 (Version None)
Quarter: 2010Q4

REPORT INFORMATION
  Report Type: 
  Country: None (occurrence: None)
  Receive Date: 20101222
  Receipt Date: 20100617
  Transmission Date: 20110411
  Serious: No
  Sender: FDA-Public Use
  Company Number: US-AMGEN-TCS419102

PATIENT

DRUGS (2)
  1. ENBREL [Suspect]
     Indication: RHEUMATOID ARTHRITIS
     Dosage: 50 MG, QWK
     Route: 058
     Dates: start: 20030801
  2. TERIPARATIDE [Concomitant]
     Dosage: UNK UNK, UNK
     Dates: start: 20080101

REACTIONS (7)
  - ASTHENIA [None]
  - DIZZINESS [None]
  - DRUG INTERACTION [None]
  - FATIGUE [None]
  - MYALGIA [None]
  - SOMNOLENCE [None]
  - VERTIGO [None]
